FAERS Safety Report 21273847 (Version 1)
Quarter: 2022Q3

REPORT INFORMATION
  Report Type: Spontaneous
  Country: US (occurrence: US)
  Receive Date: 20220831
  Receipt Date: 20220831
  Transmission Date: 20221026
  Serious: No
  Sender: FDA-Public Use
  Company Number: US-PFIZER INC-202201103865

PATIENT
  Sex: Male

DRUGS (1)
  1. PAXLOVID [Suspect]
     Active Substance: NIRMATRELVIR\RITONAVIR
     Indication: COVID-19 treatment
     Dosage: 450 MG OF PAXLOVID BUT WITHOUT THE RITONAVIR

REACTIONS (3)
  - Incorrect dose administered [Unknown]
  - Pyrexia [Unknown]
  - Chills [Recovered/Resolved]
